FAERS Safety Report 6973541-0 (Version None)
Quarter: 2010Q3

REPORT INFORMATION
  Report Type: 
  Country: None (occurrence: None)
  Receive Date: 20100907
  Receipt Date: 20100827
  Transmission Date: 20110219
  Serious: Yes (Death, Other)
  Sender: FDA-Public Use
  Company Number: 2008JP001038

PATIENT
  Age: 39 Year
  Sex: Female

DRUGS (6)
  1. PROGRAF [Suspect]
     Indication: BONE MARROW TRANSPLANT
  2. ETANERCEPT (ETANERCEPT) FORMULATION UNKNOWN [Concomitant]
  3. ANTI-THYMOGLOBLIN (ANTI-THYMOGLOBLIN) FORMULATION UNKNOWN [Concomitant]
  4. MYCOPHENOLATE MOFETIL [Concomitant]
  5. METHYLPREDNISOLONE [Concomitant]
  6. METHOTREXATE [Concomitant]

REACTIONS (6)
  - ACUTE GRAFT VERSUS HOST DISEASE IN INTESTINE [None]
  - ACUTE GRAFT VERSUS HOST DISEASE IN LIVER [None]
  - ACUTE GRAFT VERSUS HOST DISEASE IN SKIN [None]
  - IDIOPATHIC PNEUMONIA SYNDROME [None]
  - NO THERAPEUTIC RESPONSE [None]
  - THROMBOTIC MICROANGIOPATHY [None]
